FAERS Safety Report 10747767 (Version 1)
Quarter: 2015Q1

REPORT INFORMATION
  Report Type: Spontaneous
  Country: US (occurrence: US)
  Receive Date: 20150129
  Receipt Date: 20150129
  Transmission Date: 20150721
  Serious: No
  Sender: FDA-Public Use
  Company Number: US-PFIZER INC-2015032576

PATIENT
  Age: 23 Year
  Sex: Female

DRUGS (17)
  1. VFEND [Suspect]
     Active Substance: VORICONAZOLE
     Indication: ACUTE MYELOID LEUKAEMIA
     Dosage: 200 MG, 2X/DAY
  2. URSODIOL. [Concomitant]
     Active Substance: URSODIOL
     Dosage: 300 MG, DAILY
  3. PENICILLIN V POTASSIUM. [Concomitant]
     Active Substance: PENICILLIN V POTASSIUM
     Dosage: 500 MG, 2X/DAY
  4. MORPHINE SULFATE. [Concomitant]
     Active Substance: MORPHINE SULFATE
     Dosage: 15 MG, 1X/DAY (AS NEEDED)
  5. KEPIVANCE [Concomitant]
     Active Substance: PALIFERMIN
     Dosage: 5 MG, UNK
     Dates: start: 20140813
  6. ALPRAZOLAM. [Concomitant]
     Active Substance: ALPRAZOLAM
     Dosage: 0.5 MG, 3X/DAY
  7. MAG-OX [Concomitant]
     Dosage: 400 MG, 3X/DAY
  8. FLONASE [Concomitant]
     Active Substance: FLUTICASONE PROPIONATE
     Dosage: 2 DF, 1X/DAY (50 UG, 2 SPRAYS 1X/DAY)
  9. ACYCLOVIR. [Concomitant]
     Active Substance: ACYCLOVIR
     Dosage: 400 MG, 2X/DAY
  10. PROCHLORPERAZINE MALEATE. [Concomitant]
     Active Substance: PROCHLORPERAZINE MALEATE
     Dosage: 10 MG, 3X/DAY
  11. SULFAMETHOXAZOLE AND TRIMETHOPRIM [Concomitant]
     Active Substance: SULFAMETHOXAZOLE\TRIMETHOPRIM
     Dosage: 2X/DAY (800-160MG, 1 TAB 2X/DAY ON SATURDAY AND SUNDAY ONLY)
  12. FENTANYL. [Concomitant]
     Active Substance: FENTANYL
     Dosage: 25 UG (72 HOUR 1 PATCH TO SKIN)
     Route: 062
  13. FAMOTIDINE. [Concomitant]
     Active Substance: FAMOTIDINE
     Dosage: 40 MG (1X/DAY MAY INCREASE TO 2X/DAY IF NEEDED)
  14. TACROLIMUS. [Concomitant]
     Active Substance: TACROLIMUS
     Dosage: 1 MG, 2X/DAY
  15. INFLUENZA VIRUS VACCINE [Concomitant]
     Active Substance: INFLUENZA VIRUS VACCINE
     Dosage: SINGLE DOSE
  16. MELATONIN [Concomitant]
     Active Substance: MELATONIN
     Dosage: 5 MG, 1X/DAY (AT BEDTIME AS NEEDED WITH FOOD)
  17. PERCOCET [Concomitant]
     Active Substance: ACETAMINOPHEN\OXYCODONE HYDROCHLORIDE
     Dosage: UNK, AS NEEDED

REACTIONS (2)
  - Upper respiratory tract congestion [Unknown]
  - Cough [Unknown]
